FAERS Safety Report 15878303 (Version 1)
Quarter: 2019Q1

REPORT INFORMATION
  Report Type: Spontaneous
  Country: US (occurrence: US)
  Receive Date: 20190128
  Receipt Date: 20190128
  Transmission Date: 20190417
  Serious: No
  Sender: FDA-Public Use
  Company Number: US-PFIZER INC-2019027145

PATIENT
  Age: 69 Year
  Sex: Female

DRUGS (1)
  1. XELJANZ [Suspect]
     Active Substance: TOFACITINIB CITRATE
     Indication: RHEUMATOID ARTHRITIS
     Dosage: 2X/DAY (1/2 TABLET IN THE MORNING AND 1/2 TABLET IN THE EVENING)
     Route: 048

REACTIONS (6)
  - Joint injury [Unknown]
  - Oliguria [Unknown]
  - Inflammation [Unknown]
  - Pain [Unknown]
  - Wrong technique in product usage process [Unknown]
  - Joint swelling [Unknown]
